FAERS Safety Report 6414476-1 (Version None)
Quarter: 2009Q4

REPORT INFORMATION
  Report Type: 
  Country: None (occurrence: None)
  Receive Date: 20091026
  Receipt Date: 20091021
  Transmission Date: 20100525
  Serious: Yes (Hospitalization, Other)
  Sender: FDA-Public Use
  Company Number: PHHY2009ZA28510

PATIENT
  Sex: Female

DRUGS (1)
  1. ACLASTA [Suspect]
     Indication: OSTEOPOROSIS
     Dosage: 5 MG/100 ML
     Dates: start: 20090708

REACTIONS (19)
  - APPARENT DEATH [None]
  - CARDIAC DISORDER [None]
  - CYST [None]
  - CYSTITIS [None]
  - FATIGUE [None]
  - FLUID INTAKE REDUCED [None]
  - HEADACHE [None]
  - HYPOPHAGIA [None]
  - INFLUENZA [None]
  - INSOMNIA [None]
  - MALAISE [None]
  - METASTASES TO LIVER [None]
  - MIGRAINE [None]
  - NAUSEA [None]
  - OEDEMA PERIPHERAL [None]
  - PAIN [None]
  - POLLAKIURIA [None]
  - PYELONEPHRITIS [None]
  - VOMITING [None]
